FAERS Safety Report 19799033 (Version 1)
Quarter: 2021Q3

REPORT INFORMATION
  Report Type: Spontaneous
  Country: US (occurrence: US)
  Receive Date: 20210907
  Receipt Date: 20210907
  Transmission Date: 20211014
  Serious: No
  Sender: FDA-Public Use
  Company Number: US-PFIZER INC-2021834479

PATIENT
  Age: 82 Year
  Sex: Female
  Weight: 59.87 kg

DRUGS (5)
  1. IBRANCE [Suspect]
     Active Substance: PALBOCICLIB
     Dosage: 75 MG
  2. IBRANCE [Suspect]
     Active Substance: PALBOCICLIB
     Dosage: 75 MG, 1X/DAY, (75MG ONE TABLET BY MOUTH EVERY EVENING)
     Route: 048
     Dates: start: 2021
  3. IBRANCE [Suspect]
     Active Substance: PALBOCICLIB
     Dosage: 75 MG, 1X/DAY, (SHE HAS TAKEN ONE TABLET FROM THIS SHIPMENT)
  4. LETROZOLE. [Concomitant]
     Active Substance: LETROZOLE
     Dosage: UNK
  5. IBRANCE [Suspect]
     Active Substance: PALBOCICLIB
     Indication: METASTATIC NEOPLASM
     Dosage: 100 MG

REACTIONS (5)
  - Poor quality product administered [Unknown]
  - White blood cell count decreased [Unknown]
  - Blood count abnormal [Unknown]
  - Red blood cell count decreased [Unknown]
  - Platelet count decreased [Unknown]

NARRATIVE: CASE EVENT DATE: 20210815
